FAERS Safety Report 15855068 (Version 2)
Quarter: 2019Q1

REPORT INFORMATION
  Report Type: Report from Study
  Country: US (occurrence: US)
  Receive Date: 20190122
  Receipt Date: 20190130
  Transmission Date: 20190417
  Serious: Yes (Other)
  Sender: FDA-Public Use
  Company Number: US-BAYER-2019-015095

PATIENT
  Age: 77 Year
  Sex: Female

DRUGS (1)
  1. ADEMPAS [Suspect]
     Active Substance: RIOCIGUAT
     Indication: PULMONARY ARTERIAL HYPERTENSION
     Dosage: 1.0 MG, TID
     Route: 048
     Dates: start: 20181228, end: 201901

REACTIONS (5)
  - Blood pressure systolic increased [None]
  - Blood pressure diastolic decreased [None]
  - Nausea [None]
  - Oedema peripheral [None]
  - Headache [None]

NARRATIVE: CASE EVENT DATE: 201901
